FAERS Safety Report 8992249 (Version 1)
Quarter: 2012Q4

REPORT INFORMATION
  Report Type: 
  Country: CA (occurrence: CA)
  Receive Date: 20121231
  Receipt Date: 20121231
  Transmission Date: 20130627
  Serious: Yes (Death, Hospitalization)
  Sender: FDA-Public Use
  Company Number: CA-ELI_LILLY_AND_COMPANY-CA201212007402

PATIENT
  Age: 77 Year
  Sex: Female

DRUGS (6)
  1. FORTEO [Suspect]
     Indication: OSTEOPOROSIS
     Dosage: 20 ug, qd
     Route: 058
     Dates: start: 20070823, end: 20090323
  2. FORTEO [Suspect]
     Dosage: 20 ug, qd
     Route: 058
     Dates: start: 20120309, end: 20120819
  3. RAMIPRIL [Concomitant]
     Dosage: UNK
  4. HYDROCHLOROTHIAZIDE [Concomitant]
     Dosage: UNK
  5. VITAMIN C [Concomitant]
     Dosage: UNK
  6. COD LIVER OIL [Concomitant]
     Dosage: UNK

REACTIONS (2)
  - Pulmonary fibrosis [Fatal]
  - Pulmonary embolism [Unknown]
